FAERS Safety Report 7474119-5 (Version None)
Quarter: 2011Q2

REPORT INFORMATION
  Report Type: 
  Country: None (occurrence: None)
  Receive Date: 20110511
  Receipt Date: 20110425
  Transmission Date: 20111010
  Serious: Yes (Other)
  Sender: FDA-Public Use
  Company Number: TW-PFIZER INC-2011100058

PATIENT
  Age: 40 Year
  Sex: Male

DRUGS (2)
  1. NICORETTE [Suspect]
     Dosage: 10 MG, 3-4 CATRIDGES PER DAY
     Route: 055
     Dates: start: 20090101
  2. NICORETTE [Suspect]
     Dosage: 10 MG, 1 CARTRIDGE EVERY 2-3 DAYS FOR A YEAR

REACTIONS (3)
  - INCORRECT DRUG ADMINISTRATION DURATION [None]
  - DRUG DEPENDENCE [None]
  - SENSORY DISTURBANCE [None]
